FAERS Safety Report 5527557-1 (Version None)
Quarter: 2007Q4

REPORT INFORMATION
  Report Type: 
  Country: None (occurrence: None)
  Receive Date: 20071128
  Receipt Date: 20071115
  Transmission Date: 20080405
  Serious: Yes (Hospitalization)
  Sender: FDA-Public Use
  Company Number: US-ELI_LILLY_AND_COMPANY-US200711004260

PATIENT
  Sex: Female

DRUGS (9)
  1. FORTEO [Suspect]
     Indication: OSTEOPOROSIS
     Dosage: UNK, UNK
     Dates: start: 20040101
  2. LIPITOR [Concomitant]
     Indication: BLOOD CHOLESTEROL INCREASED
  3. PLAVIX [Concomitant]
     Indication: MYOCARDIAL INFARCTION
  4. ASPIRIN [Concomitant]
     Indication: CARDIAC DISORDER
  5. SYNTHROID [Concomitant]
     Indication: THYROID DISORDER
  6. CALTRATE + D [Concomitant]
     Dosage: UNK, DAILY (1/D)
  7. LOTENSIN [Concomitant]
     Indication: HYPERTENSION
  8. LORAZEPAM [Concomitant]
  9. AMITRIPTLINE HCL [Concomitant]

REACTIONS (7)
  - ARTERIAL STENOSIS [None]
  - ARTERIAL THROMBOSIS [None]
  - BONE DENSITY DECREASED [None]
  - DIZZINESS [None]
  - FEELING ABNORMAL [None]
  - HEART RATE ABNORMAL [None]
  - MACULAR DEGENERATION [None]
